FAERS Safety Report 14202235 (Version 2)
Quarter: 2017Q4

REPORT INFORMATION
  Report Type: Report from Study
  Country: US (occurrence: US)
  Receive Date: 20171117
  Receipt Date: 20171121
  Transmission Date: 20180321
  Serious: Yes (Hospitalization, Other)
  Sender: FDA-Public Use
  Company Number: US-GILEAD-2017-0305126

PATIENT
  Age: 69 Year
  Sex: Female

DRUGS (1)
  1. RANOLAZINE. [Suspect]
     Active Substance: RANOLAZINE
     Indication: ANGINA PECTORIS
     Dosage: 500 MG, UNK
     Route: 048
     Dates: start: 20170301

REACTIONS (17)
  - Craniocerebral injury [Unknown]
  - Cerebral disorder [Unknown]
  - Fall [Unknown]
  - Blood pressure abnormal [Unknown]
  - Myocardial infarction [Unknown]
  - Nausea [Unknown]
  - Hypersomnia [Unknown]
  - Pelvic fracture [Unknown]
  - Amnesia [Unknown]
  - Hypertension [Not Recovered/Not Resolved]
  - Cerebrovascular accident [Unknown]
  - Cyanosis [Unknown]
  - Headache [Unknown]
  - Product use issue [Not Recovered/Not Resolved]
  - Constipation [Unknown]
  - Dementia [Unknown]
  - Foot fracture [Unknown]
